FAERS Safety Report 20622292 (Version 1)
Quarter: 2022Q1

REPORT INFORMATION
  Report Type: Spontaneous
  Country: US (occurrence: US)
  Receive Date: 20220322
  Receipt Date: 20220322
  Transmission Date: 20220423
  Serious: No
  Sender: FDA-Public Use
  Company Number: US-ALLERGAN-2135951US

PATIENT
  Sex: Female

DRUGS (1)
  1. LATISSE [Suspect]
     Active Substance: BIMATOPROST
     Indication: Product used for unknown indication
     Dosage: UNK

REACTIONS (3)
  - Prostaglandin analogue periorbitopathy [Not Recovered/Not Resolved]
  - Deformity [Not Recovered/Not Resolved]
  - Skin discolouration [Not Recovered/Not Resolved]
